FAERS Safety Report 9830008 (Version 1)
Quarter: 2014Q1

REPORT INFORMATION
  Report Type: Spontaneous
  Country: CA (occurrence: CA)
  Receive Date: 20140120
  Receipt Date: 20140120
  Transmission Date: 20141002
  Serious: Yes (Other)
  Sender: FDA-Public Use
  Company Number: CA-MERCK-1401CAN006916

PATIENT
  Age: 56 Year
  Sex: Female
  Weight: 67 kg

DRUGS (7)
  1. SAPHRIS [Suspect]
     Dosage: 5 MG, 1 EVERY 1 DAY
     Route: 048
  2. CITALOPRAM [Concomitant]
     Route: 065
  3. CRESTOR [Concomitant]
     Route: 065
  4. PREMARIN [Concomitant]
     Route: 065
  5. PRISTIQ [Concomitant]
     Route: 065
  6. TECTA [Concomitant]
     Route: 065
  7. VESICARE [Concomitant]
     Route: 065

REACTIONS (1)
  - Anaphylactic reaction [Recovered/Resolved]
